FAERS Safety Report 17102726 (Version 1)
Quarter: 2019Q4

REPORT INFORMATION
  Report Type: Spontaneous
  Country: US (occurrence: US)
  Receive Date: 20191106
  Receipt Date: 20191106
  Transmission Date: 20200122
  Serious: No
  Sender: FDA-Public Use
  Company Number: None

PATIENT
  Age: 8 Year
  Sex: Male

DRUGS (1)
  1. NEULASTA [Suspect]
     Active Substance: PEGFILGRASTIM
     Dosage: ?          OTHER DOSE:6MG/0.;OTHER FREQUENCY:OTHER;?
     Route: 058
     Dates: start: 20191016

REACTIONS (1)
  - Off label use [None]
